FAERS Safety Report 9124997 (Version 1)
Quarter: 2013Q1

REPORT INFORMATION
  Report Type: Spontaneous
  Country: CO (occurrence: CO)
  Receive Date: 20130227
  Receipt Date: 20130227
  Transmission Date: 20140127
  Serious: Yes (Hospitalization)
  Sender: FDA-Public Use
  Company Number: CO-B.I. PHARMACEUTICALS,INC./RIDGEFIELD-2013-RA-00026RA

PATIENT
  Age: 67 Year
  Sex: Female

DRUGS (1)
  1. PRADAXA [Suspect]
     Indication: CEREBROVASCULAR ACCIDENT PROPHYLAXIS
     Dosage: 110MG EVERY 12 HOURS
     Route: 048
     Dates: start: 201207, end: 201302

REACTIONS (2)
  - Gastric haemorrhage [Recovered/Resolved]
  - Transient ischaemic attack [Recovered/Resolved]
